FAERS Safety Report 17210673 (Version 3)
Quarter: 2020Q1

REPORT INFORMATION
  Report Type: Report from Study
  Country: None (occurrence: US)
  Receive Date: 20191227
  Receipt Date: 20200129
  Transmission Date: 20200409
  Serious: Yes (Other)
  Sender: FDA-Public Use
  Company Number: US-ABBVIE-19P-163-3213075-00

PATIENT
  Sex: Male

DRUGS (1)
  1. HUMIRA [Suspect]
     Active Substance: ADALIMUMAB
     Indication: RHEUMATOID ARTHRITIS
     Route: 058
     Dates: end: 2019

REACTIONS (6)
  - Central nervous system lesion [Unknown]
  - Headache [Not Recovered/Not Resolved]
  - Fall [Recovering/Resolving]
  - Spinal stenosis [Recovering/Resolving]
  - Spinal cord disorder [Unknown]
  - Asthenia [Recovering/Resolving]
